FAERS Safety Report 10868803 (Version 1)
Quarter: 2015Q1

REPORT INFORMATION
  Report Type: Report from Study
  Country: US (occurrence: US)
  Receive Date: 20150225
  Receipt Date: 20150225
  Transmission Date: 20150721
  Serious: Yes (Other)
  Sender: FDA-Public Use
  Company Number: PHEH2015US003299

PATIENT
  Sex: Male

DRUGS (1)
  1. TASIGNA [Suspect]
     Active Substance: NILOTINIB
     Indication: CHRONIC MYELOID LEUKAEMIA
     Dosage: 150 MG, 2 TABLETS TWICE A DAY
     Route: 048

REACTIONS (4)
  - Rhinitis allergic [Unknown]
  - Rhinorrhoea [Unknown]
  - Cardiac disorder [Unknown]
  - Lacrimation increased [Unknown]
